FAERS Safety Report 7350167-0 (Version None)
Quarter: 2011Q1

REPORT INFORMATION
  Report Type: 
  Country: None (occurrence: None)
  Receive Date: 20110314
  Receipt Date: 20110303
  Transmission Date: 20110831
  Serious: Yes (Hospitalization)
  Sender: FDA-Public Use
  Company Number: B0699967A

PATIENT
  Age: 64 Year
  Sex: Male
  Weight: 90 kg

DRUGS (1)
  1. AVANDIA [Suspect]
     Indication: DIABETES MELLITUS
     Dosage: 4MG THREE TIMES PER DAY
     Route: 048
     Dates: start: 20050401, end: 20070301

REACTIONS (6)
  - MYOCARDIAL INFARCTION [None]
  - CARDIAC FAILURE CONGESTIVE [None]
  - CORONARY ARTERY DISEASE [None]
  - TRICUSPID VALVE INCOMPETENCE [None]
  - MITRAL VALVE INCOMPETENCE [None]
  - ISCHAEMIC CARDIOMYOPATHY [None]
